FAERS Safety Report 8163075-2 (Version None)
Quarter: 2012Q1

REPORT INFORMATION
  Report Type: 
  Country: None (occurrence: None)
  Receive Date: 20120224
  Receipt Date: 20120221
  Transmission Date: 20120608
  Serious: Yes (Hospitalization)
  Sender: FDA-Public Use
  Company Number: US-GLAXOSMITHKLINE-A0966728A

PATIENT
  Age: 68 Year
  Sex: Female

DRUGS (3)
  1. LOPRESSOR [Concomitant]
  2. VENTOLIN HFA [Suspect]
     Indication: CHRONIC OBSTRUCTIVE PULMONARY DISEASE
     Route: 055
  3. PLAVIX [Concomitant]

REACTIONS (2)
  - PNEUMONIA [None]
  - BLOOD DISORDER [None]
